FAERS Safety Report 8885879 (Version 1)
Quarter: 2012Q4

REPORT INFORMATION
  Report Type: Report from Study
  Country: US (occurrence: US)
  Receive Date: 20121105
  Receipt Date: 20121105
  Transmission Date: 20130627
  Serious: Yes (Hospitalization)
  Sender: FDA-Public Use
  Company Number: PHHO2010US17606

PATIENT
  Age: 39 Year
  Sex: Male
  Weight: 167.6 kg

DRUGS (12)
  1. ALISKIREN [Suspect]
     Route: 048
     Dates: start: 20101026, end: 20101119
  2. COREG [Concomitant]
     Indication: CARDIAC FAILURE
  3. FUROSEMIDE [Concomitant]
     Indication: CARDIAC FAILURE
  4. LISINOPRIL [Concomitant]
     Indication: CARDIAC FAILURE
  5. SIMVASTATIN [Concomitant]
  6. COUMADIN [Concomitant]
     Indication: THROMBOSIS
  7. FAMOTIDINE [Concomitant]
  8. POTASSIUM CHLORIDE [Concomitant]
  9. LANTUS [Concomitant]
     Indication: DIABETES MELLITUS
  10. NOVOLOG [Concomitant]
     Indication: DIABETES MELLITUS
  11. ASA [Concomitant]
     Indication: CARDIAC FAILURE
  12. VIAGRA [Concomitant]
     Indication: ERECTILE DYSFUNCTION

REACTIONS (2)
  - Depression [Unknown]
  - Suicidal ideation [Unknown]
